FAERS Safety Report 4600975-1 (Version None)
Quarter: 2005Q1

REPORT INFORMATION
  Report Type: 
  Country: None (occurrence: None)
  Receive Date: 20050204
  Receipt Date: 20041005
  Transmission Date: 20050727
  Serious: Yes (Hospitalization)
  Sender: FDA-Public Use
  Company Number: PHEH2004US10786

PATIENT
  Age: 61 Year
  Sex: Female

DRUGS (3)
  1. CLOZARIL [Suspect]
     Indication: SCHIZOPHRENIA
     Dosage: 250 MG, QHS, ORAL
     Route: 048
  2. LITHIUM CARBONATE [Concomitant]
  3. GEODON (ZIPRADISONE HYDROCHLORIDE) [Concomitant]

REACTIONS (1)
  - DELUSION [None]
